FAERS Safety Report 24246448 (Version 1)
Quarter: 2024Q3

REPORT INFORMATION
  Report Type: Spontaneous
  Country: US (occurrence: US)
  Receive Date: 20240825
  Receipt Date: 20240825
  Transmission Date: 20241017
  Serious: Yes (Hospitalization, Other)
  Sender: ALKEM
  Company Number: None

PATIENT
  Age: 82 Year
  Sex: Male

DRUGS (2)
  1. GABAPENTIN [Suspect]
     Active Substance: GABAPENTIN
     Indication: Chronic kidney disease
     Dosage: 100 MILLIGRAM, TID, (EVERY 8 HOUR)
     Route: 065
  2. GABAPENTIN [Suspect]
     Active Substance: GABAPENTIN
     Dosage: 400 MILLIGRAM, TID, (EVERY 8 HOUR)
     Route: 065

REACTIONS (6)
  - Chorea [Recovered/Resolved]
  - Dysphagia [Recovered/Resolved]
  - Renal impairment [Recovered/Resolved]
  - Dysarthria [Recovered/Resolved]
  - Myoclonus [Recovered/Resolved]
  - Dyskinesia [Recovered/Resolved]
